FAERS Safety Report 4298437-7 (Version None)
Quarter: 2004Q1

REPORT INFORMATION
  Report Type: 
  Country: None (occurrence: None)
  Receive Date: 20040218
  Receipt Date: 20030722
  Transmission Date: 20041129
  Serious: Yes (Other)
  Sender: FDA-Public Use
  Company Number: US-BRISTOL-MYERS SQUIBB COMPANY-12335824

PATIENT
  Age: 46 Year
  Sex: Female

DRUGS (6)
  1. STADOL [Suspect]
     Indication: MIGRAINE
     Route: 045
  2. DITROPAN [Concomitant]
  3. PAXIL [Concomitant]
  4. AMBIEN [Concomitant]
  5. DILANTIN [Concomitant]
  6. HYDROCODONE [Concomitant]

REACTIONS (1)
  - DEPENDENCE [None]
